FAERS Safety Report 25932402 (Version 1)
Quarter: 2025Q4

REPORT INFORMATION
  Report Type: Spontaneous
  Country: EU (occurrence: EU)
  Receive Date: 20251016
  Receipt Date: 20251016
  Transmission Date: 20260117
  Serious: Yes (Other)
  Sender: REGENERON
  Company Number: EU-BAYER-2025A134880

PATIENT
  Age: 78 Year
  Sex: Male

DRUGS (1)
  1. EYLEA HD [Suspect]
     Active Substance: AFLIBERCEPT
     Indication: Neovascular age-related macular degeneration
     Dosage: UNK, 114.3 MG/ML

REACTIONS (2)
  - Blindness transient [Recovering/Resolving]
  - Eye inflammation [Unknown]
